FAERS Safety Report 19827797 (Version 2)
Quarter: 2022Q3

REPORT INFORMATION
  Report Type: Spontaneous
  Country: AR (occurrence: AR)
  Receive Date: 20210914
  Receipt Date: 20220819
  Transmission Date: 20221027
  Serious: Yes (Other)
  Sender: FDA-Public Use
  Company Number: AR-PFIZER INC-2020143234

PATIENT
  Age: 62 Year
  Sex: Female

DRUGS (3)
  1. SUTENT [Suspect]
     Active Substance: SUNITINIB MALATE
     Indication: Gastrointestinal stromal tumour
     Dosage: 50 MG, DAILY
     Dates: start: 20150216
  2. SUTENT [Suspect]
     Active Substance: SUNITINIB MALATE
     Dosage: 25 MG, CYCLIC (45 DAYS, SCHEME 4/2 REST)
  3. SUTENT [Suspect]
     Active Substance: SUNITINIB MALATE
     Dosage: 25 MG, CYCLIC (45 DAYS, SCHEME 4/2 REST)

REACTIONS (11)
  - Neutropenia [Recovered/Resolved]
  - Hypothyroidism [Recovered/Resolved]
  - Pericardial effusion [Not Recovered/Not Resolved]
  - Off label use [Not Recovered/Not Resolved]
  - Neoplasm progression [Unknown]
  - COVID-19 [Unknown]
  - Hypertension [Not Recovered/Not Resolved]
  - Fatigue [Unknown]
  - Endocrine disorder [Not Recovered/Not Resolved]
  - Diarrhoea [Not Recovered/Not Resolved]
  - Anaemia [Not Recovered/Not Resolved]

NARRATIVE: CASE EVENT DATE: 20150401
